FAERS Safety Report 23371386 (Version 1)
Quarter: 2024Q1

REPORT INFORMATION
  Report Type: Spontaneous
  Country: PL (occurrence: PL)
  Receive Date: 20240105
  Receipt Date: 20240105
  Transmission Date: 20240410
  Serious: Yes (Other)
  Sender: FDA-Public Use
  Company Number: None

PATIENT

DRUGS (1)
  1. MENOPUR [Suspect]
     Active Substance: FOLLITROPIN\LUTEINIZING HORMONE
     Indication: Product used for unknown indication
     Dosage: 150 INTERNATIONAL UNIT, INJECTION
     Route: 065
     Dates: start: 20190520, end: 20190520

REACTIONS (4)
  - Headache [Recovered/Resolved]
  - Asthenia [Unknown]
  - Malaise [Unknown]
  - Vision blurred [Recovered/Resolved]

NARRATIVE: CASE EVENT DATE: 20190521
